FAERS Safety Report 5832261-6 (Version None)
Quarter: 2008Q3

REPORT INFORMATION
  Report Type: 
  Country: None (occurrence: None)
  Receive Date: 20080804
  Receipt Date: 20080804
  Transmission Date: 20090109
  Serious: Yes (Other)
  Sender: FDA-Public Use
  Company Number: A0740902A

PATIENT
  Age: 49 Year
  Sex: Female

DRUGS (4)
  1. ALLI [Suspect]
     Indication: WEIGHT LOSS DIET
     Route: 048
  2. KEPPRA [Concomitant]
  3. ZONEGRAN [Concomitant]
  4. ZONISAMIDE [Concomitant]

REACTIONS (2)
  - ABDOMINAL PAIN UPPER [None]
  - NEPHROLITHIASIS [None]
